FAERS Safety Report 12207268 (Version 2)
Quarter: 2016Q3

REPORT INFORMATION
  Report Type: Report from Study
  Country: US (occurrence: US)
  Receive Date: 20160324
  Receipt Date: 20160721
  Transmission Date: 20161109
  Serious: Yes (Death, Hospitalization, Other)
  Sender: FDA-Public Use
  Company Number: PHEH2016US007077

PATIENT
  Age: 43 Year
  Sex: Female
  Weight: 43.54 kg

DRUGS (1)
  1. AFINITOR [Suspect]
     Active Substance: EVEROLIMUS
     Indication: OLIGODENDROGLIOMA
     Dosage: 10 MG, QD (DAILY)
     Route: 048
     Dates: start: 20051230

REACTIONS (10)
  - Arteriovenous malformation [Unknown]
  - Local swelling [Unknown]
  - Haemoglobin decreased [Unknown]
  - Staphylococcal sepsis [Fatal]
  - Oligodendroglioma [Fatal]
  - Hepatic lesion [Unknown]
  - Dilatation ventricular [Unknown]
  - Swelling face [Unknown]
  - Cellulitis [Unknown]
  - Adrenal mass [Unknown]

NARRATIVE: CASE EVENT DATE: 20160303
